FAERS Safety Report 21183426 (Version 2)
Quarter: 2022Q3

REPORT INFORMATION
  Report Type: Spontaneous
  Country: BR (occurrence: BR)
  Receive Date: 20220808
  Receipt Date: 20220912
  Transmission Date: 20221026
  Serious: Yes (Other)
  Sender: FDA-Public Use
  Company Number: BR-SA-SAC20220707001002

PATIENT
  Age: 75 Year
  Sex: Female
  Weight: 86 kg

DRUGS (8)
  1. INSULIN GLARGINE [Suspect]
     Active Substance: INSULIN GLARGINE
     Indication: Diabetes mellitus
     Dosage: UNK
  2. PEROCLIN [Concomitant]
  3. LOSARTAN [Concomitant]
     Active Substance: LOSARTAN
  4. DIOSMIN [Concomitant]
     Active Substance: DIOSMIN
  5. ETHINYL ESTRADIOL\NORETHINDRONE ACETATE [Concomitant]
     Active Substance: ETHINYL ESTRADIOL\NORETHINDRONE ACETATE
  6. AMIODARONE [Concomitant]
     Active Substance: AMIODARONE
  7. HYDRALIN [SODIUM BORATE] [Concomitant]
     Indication: Blood pressure abnormal
  8. BASAGLAR [Concomitant]
     Active Substance: INSULIN GLARGINE
     Dosage: UNK UNK, BID
     Dates: start: 2002

REACTIONS (6)
  - Retinal haemorrhage [Unknown]
  - Blindness unilateral [Not Recovered/Not Resolved]
  - Blood glucose increased [Recovered/Resolved]
  - Device delivery system issue [Recovered/Resolved]
  - Ocular discomfort [Unknown]
  - Visual impairment [Unknown]
